FAERS Safety Report 8306756 (Version 4)
Quarter: 2020Q1

REPORT INFORMATION
  Report Type: Spontaneous
  Country: FR (occurrence: FR)
  Receive Date: 20111222
  Receipt Date: 20200324
  Transmission Date: 20200409
  Serious: Yes (Hospitalization, Other)
  Sender: FDA-Public Use
  Company Number: FR-RANBAXY-2011RR-51108

PATIENT
  Age: 25 Year
  Sex: Female

DRUGS (2)
  1. PARACETAMOL [Suspect]
     Active Substance: ACETAMINOPHEN
     Indication: PRODUCT USED FOR UNKNOWN INDICATION
     Dosage: 24 G, SINGLE
     Route: 048
  2. CLOBAZAM. [Concomitant]
     Active Substance: CLOBAZAM
     Indication: EPILEPSY
     Dosage: UNK
     Route: 065

REACTIONS (16)
  - Encephalopathy [Unknown]
  - Prothrombin time shortened [Unknown]
  - Intentional overdose [Unknown]
  - Liver injury [Unknown]
  - Pyrexia [Unknown]
  - Amenorrhoea [Unknown]
  - Exposure during pregnancy [Recovering/Resolving]
  - Live birth [Unknown]
  - Premature delivery [Unknown]
  - Amniotic cavity infection [Recovered/Resolved]
  - Toxicity to various agents [Unknown]
  - Hepatic failure [Recovering/Resolving]
  - Hepatocellular injury [Recovered/Resolved]
  - Pregnancy [Recovered/Resolved]
  - Caesarean section [Unknown]
  - Hepatic failure [Recovered/Resolved]
